FAERS Safety Report 8805017 (Version 5)
Quarter: 2013Q4

REPORT INFORMATION
  Report Type: Spontaneous
  Country: None (occurrence: None)
  Receive Date: 20120917
  Receipt Date: 20131009
  Transmission Date: 20140711
  Serious: Yes (Hospitalization, Other)
  Sender: FDA-Public Use
  Company Number: AUR-APL-2012-03921

PATIENT
  Age: 94 Year
  Sex: Female

DRUGS (9)
  1. SIMVASTATIN (SIMVASTATIN) [Suspect]
     Indication: HYPERCHOLESTEROLAEMIA
     Route: 048
     Dates: start: 20100426
  2. SLOZEM [Suspect]
     Indication: HYPERTENSION
     Route: 048
     Dates: start: 20100426
  3. ASPIRIN (ACETYLSALICYLIC ACID) [Concomitant]
  4. FERROUS SULPHATE (FERROUS SULFATE) [Concomitant]
  5. FUROSEMIDE (FUROSEMIDE) [Concomitant]
  6. MIRTAZAPINE (MIRTAZAPINE) [Concomitant]
  7. OMEPRAZOLE (OMEPRAZOLE) [Concomitant]
  8. RAMIPRIL (RAMIPRIL) [Concomitant]
  9. ALLOPURINOL [Concomitant]

REACTIONS (6)
  - Rhabdomyolysis [None]
  - Fall [None]
  - Swelling face [None]
  - Mobility decreased [None]
  - Contusion [None]
  - Drug interaction [None]
